FAERS Safety Report 17562989 (Version 1)
Quarter: 2020Q1

REPORT INFORMATION
  Report Type: Other
  Country: CA (occurrence: CA)
  Receive Date: 20200319
  Receipt Date: 20200319
  Transmission Date: 20200409
  Serious: Yes (Other)
  Sender: FDA-Public Use
  Company Number: CA-BECTON DICKINSON-2020BDN00087

PATIENT
  Age: 46 Year
  Sex: Female
  Weight: 75 kg

DRUGS (19)
  1. AVAMYS [Concomitant]
     Active Substance: FLUTICASONE FUROATE
  2. FOLIC ACID. [Concomitant]
     Active Substance: FOLIC ACID
  3. CHLORHEXIDINE [Suspect]
     Active Substance: CHLORHEXIDINE
  4. AMOXICILLIN. [Concomitant]
     Active Substance: AMOXICILLIN
  5. CITALOPRAM [Concomitant]
     Active Substance: CITALOPRAM HYDROBROMIDE
  6. RESTASIS [Concomitant]
     Active Substance: CYCLOSPORINE
  7. SULFASALAZINE. [Concomitant]
     Active Substance: SULFASALAZINE
  8. DIPHENHYDRAMINE. [Concomitant]
     Active Substance: DIPHENHYDRAMINE
  9. METFORMIN [Suspect]
     Active Substance: METFORMIN HYDROCHLORIDE
     Route: 064
  10. PANTOTHENIC ACID [Suspect]
     Active Substance: PANTOTHENIC ACID
     Route: 064
  11. RITUXAN [Suspect]
     Active Substance: RITUXIMAB
     Indication: RHEUMATOID ARTHRITIS
     Dosage: 1000 MG
     Route: 042
  12. ACETAMINOPHEN. [Concomitant]
     Active Substance: ACETAMINOPHEN
  13. LYRICA [Concomitant]
     Active Substance: PREGABALIN
  14. METHOTREXATE. [Concomitant]
     Active Substance: METHOTREXATE
  15. METHYLPREDNISOLONE NOS [Concomitant]
     Active Substance: METHYLPREDNISOLONE
  16. NIFEDIPINE. [Suspect]
     Active Substance: NIFEDIPINE
  17. SILDENAFIL. [Suspect]
     Active Substance: SILDENAFIL
     Route: 064
  18. INSULIN [Suspect]
     Active Substance: INSULIN NOS
     Route: 064
  19. METHYLDOPA. [Suspect]
     Active Substance: METHYLDOPA
     Route: 064

REACTIONS (18)
  - Depression [Not Recovered/Not Resolved]
  - Dyspnoea [Not Recovered/Not Resolved]
  - Ovarian cyst [Not Recovered/Not Resolved]
  - Pruritus [Not Recovered/Not Resolved]
  - Weight decreased [Not Recovered/Not Resolved]
  - Blood pressure diastolic increased [Not Recovered/Not Resolved]
  - Heart rate decreased [Not Recovered/Not Resolved]
  - Somnolence [Not Recovered/Not Resolved]
  - Therapeutic product effect decreased [Not Recovered/Not Resolved]
  - Blood pressure diastolic abnormal [Not Recovered/Not Resolved]
  - Rheumatoid arthritis [Not Recovered/Not Resolved]
  - Blood pressure systolic abnormal [Not Recovered/Not Resolved]
  - Chest discomfort [Not Recovered/Not Resolved]
  - Herpes zoster [Not Recovered/Not Resolved]
  - Erythema [Not Recovered/Not Resolved]
  - Blood pressure systolic increased [Not Recovered/Not Resolved]
  - Pain [Not Recovered/Not Resolved]
  - Stress [Not Recovered/Not Resolved]
